FAERS Safety Report 10029143 (Version 1)
Quarter: 2014Q1

REPORT INFORMATION
  Report Type: Spontaneous
  Country: US (occurrence: US)
  Receive Date: 20140321
  Receipt Date: 20140321
  Transmission Date: 20141002
  Serious: Yes (Hospitalization, Other)
  Sender: FDA-Public Use
  Company Number: US-ASTRAZENECA-2014SE18608

PATIENT
  Age: 865 Month
  Sex: Female
  Weight: 104.3 kg

DRUGS (8)
  1. NEXIUM [Suspect]
     Indication: GASTRIC CANCER
     Route: 048
     Dates: start: 2005
  2. NEXIUM [Suspect]
     Indication: HELICOBACTER GASTRITIS
     Route: 048
     Dates: start: 2005
  3. NEXIUM [Suspect]
     Indication: BARRETT^S OESOPHAGUS
     Route: 048
     Dates: start: 2005
  4. NEXIUM [Suspect]
     Indication: GASTROOESOPHAGEAL REFLUX DISEASE
     Route: 048
     Dates: start: 2005
  5. NEXIUM [Suspect]
     Indication: GASTRIC CANCER
     Route: 048
     Dates: start: 200701
  6. NEXIUM [Suspect]
     Indication: HELICOBACTER GASTRITIS
     Route: 048
     Dates: start: 200701
  7. NEXIUM [Suspect]
     Indication: BARRETT^S OESOPHAGUS
     Route: 048
     Dates: start: 200701
  8. NEXIUM [Suspect]
     Indication: GASTROOESOPHAGEAL REFLUX DISEASE
     Route: 048
     Dates: start: 200701

REACTIONS (5)
  - Gastric cancer [Unknown]
  - Fall [Unknown]
  - Concussion [Unknown]
  - Barrett^s oesophagus [Unknown]
  - Intentional drug misuse [Unknown]
